FAERS Safety Report 7108843-0 (Version None)
Quarter: 2010Q4

REPORT INFORMATION
  Report Type: 
  Country: None (occurrence: None)
  Receive Date: 20101117
  Receipt Date: 20101108
  Transmission Date: 20110411
  Serious: Yes (Other)
  Sender: FDA-Public Use
  Company Number: US-AMGEN-USASP2010003864

PATIENT

DRUGS (1)
  1. ENBREL [Suspect]
     Indication: RHEUMATOID ARTHRITIS
     Dates: start: 19990101, end: 20100701

REACTIONS (4)
  - BREAST CANCER STAGE I [None]
  - DRUG EFFECT DECREASED [None]
  - MAMMOPLASTY [None]
  - RHEUMATOID ARTHRITIS [None]
